FAERS Safety Report 8600345 (Version 3)
Quarter: 2014Q1

REPORT INFORMATION
  Report Type: Spontaneous
  Country: US (occurrence: US)
  Receive Date: 20120606
  Receipt Date: 20140115
  Transmission Date: 20141002
  Serious: No
  Sender: FDA-Public Use
  Company Number: US-ASTRAZENECA-2012SE35503

PATIENT
  Age: 20379 Day
  Sex: Female

DRUGS (34)
  1. NEXIUM [Suspect]
     Indication: GASTRIC DISORDER
     Route: 048
     Dates: start: 2001
  2. NEXIUM [Suspect]
     Indication: GASTRIC DISORDER
     Route: 048
     Dates: start: 20011120
  3. NEXIUM [Suspect]
     Indication: GASTRIC DISORDER
     Route: 048
  4. PREVACID [Concomitant]
     Dates: start: 2000
  5. PROTONIX [Concomitant]
  6. TUMS [Concomitant]
  7. GAVISCON [Concomitant]
  8. PEPTO-BISMOL [Concomitant]
  9. HYDROXYCHLOROGAINE [Concomitant]
  10. MILK THISTLE [Concomitant]
  11. ELVAIL [Concomitant]
     Dates: start: 20070507
  12. ZYRTEC [Concomitant]
  13. TRIMAX [Concomitant]
  14. GABAPENTIN [Concomitant]
  15. PREMARIN [Concomitant]
  16. SULFASALAZINE [Concomitant]
  17. NIACIN [Concomitant]
  18. POTASSIUM [Concomitant]
  19. FOSAMAX [Concomitant]
     Dates: start: 200707
  20. LEFLUNOMIDE [Concomitant]
  21. ZANAFLEX [Concomitant]
  22. HCTZ [Concomitant]
     Dates: start: 20070507
  23. LEVAQUIN [Concomitant]
  24. ACTONEL [Concomitant]
     Dates: start: 200706
  25. METOPROLOL [Concomitant]
  26. CALCIUM +D [Concomitant]
  27. CYCLOBENZAPRINE [Concomitant]
  28. ASPIRIN [Concomitant]
  29. FISH OIL [Concomitant]
  30. GLUCOSAMINE [Concomitant]
  31. TOPROL XL [Concomitant]
     Route: 048
     Dates: start: 20030127
  32. LEXAPRO [Concomitant]
     Dates: start: 20030127
  33. XANAX [Concomitant]
     Dosage: 0.5 MG, 1/2 DAILY
  34. SINGULAIR [Concomitant]

REACTIONS (20)
  - Osteoporosis [Unknown]
  - Multiple fractures [Unknown]
  - Aortic disorder [Unknown]
  - Arthritis [Unknown]
  - Calcium deficiency [Unknown]
  - Chronic obstructive pulmonary disease [Unknown]
  - Rheumatoid arthritis [Unknown]
  - Vitamin D deficiency [Unknown]
  - Neuralgia [Unknown]
  - Nasopharyngitis [Unknown]
  - Ear pain [Unknown]
  - Sinusitis [Unknown]
  - Pain [Unknown]
  - Ear infection [Unknown]
  - Carpal tunnel syndrome [Unknown]
  - Depression [Unknown]
  - Arthralgia [Unknown]
  - Vomiting [Unknown]
  - Rash [Unknown]
  - Gallbladder disorder [Unknown]
